FAERS Safety Report 11975920 (Version 2)
Quarter: 2016Q1

REPORT INFORMATION
  Report Type: Spontaneous
  Country: FR (occurrence: FR)
  Receive Date: 20160129
  Receipt Date: 20160201
  Transmission Date: 20160526
  Serious: Yes (Hospitalization, Other)
  Sender: FDA-Public Use
  Company Number: FR-009507513-1601FRA009069

PATIENT
  Age: 16 Year
  Sex: Female

DRUGS (1)
  1. NEXPLANON [Suspect]
     Active Substance: ETONOGESTREL
     Indication: CONTRACEPTION
     Dosage: UNK
     Route: 059
     Dates: start: 2015

REACTIONS (6)
  - Medication error [Unknown]
  - Maternal exposure during pregnancy [Recovered/Resolved]
  - Unintended pregnancy [Recovered/Resolved]
  - Caesarean section [Unknown]
  - Pregnancy with implant contraceptive [Recovered/Resolved]
  - Eclampsia [Recovered/Resolved]

NARRATIVE: CASE EVENT DATE: 2015
